FAERS Safety Report 4763561-9 (Version None)
Quarter: 2005Q3

REPORT INFORMATION
  Report Type: 
  Country: None (occurrence: None)
  Receive Date: 20050908
  Receipt Date: 20050829
  Transmission Date: 20060218
  Serious: Yes (Other)
  Sender: FDA-Public Use
  Company Number: 200512716EU

PATIENT
  Age: 37 Year
  Sex: Female

DRUGS (7)
  1. NICORETTE [Suspect]
     Indication: SMOKING CESSATION THERAPY
     Route: 002
     Dates: start: 20040704
  2. IBUPROFEN [Concomitant]
     Indication: HEADACHE
  3. CENTRUM [Concomitant]
     Indication: PROPHYLAXIS
  4. ASCORBIC ACID [Concomitant]
     Indication: DRUG USE FOR UNKNOWN INDICATION
  5. GRAPE SEED [Concomitant]
     Indication: DRUG USE FOR UNKNOWN INDICATION
     Dates: start: 20050401
  6. PARACETAMOL [Concomitant]
     Indication: HEADACHE
  7. DESLORATADINE [Concomitant]
     Indication: MULTIPLE ALLERGIES

REACTIONS (2)
  - DEPENDENCE [None]
  - INTENTIONAL MISUSE [None]
